FAERS Safety Report 16308693 (Version 2)
Quarter: 2019Q3

REPORT INFORMATION
  Report Type: Spontaneous
  Country: US (occurrence: US)
  Receive Date: 20190514
  Receipt Date: 20190715
  Transmission Date: 20191004
  Serious: No
  Sender: FDA-Public Use
  Company Number: US-MYLANLABS-2019M1041141

PATIENT
  Sex: Female

DRUGS (1)
  1. ETHINYLESTRADIOL/LEVONORGESTREL [Suspect]
     Active Substance: ETHINYL ESTRADIOL\LEVONORGESTREL
     Indication: CONTRACEPTION
     Dosage: 1 DOSAGE FORM
     Route: 048
     Dates: start: 20190324

REACTIONS (12)
  - Depression [Unknown]
  - Dizziness [Unknown]
  - Somnolence [Unknown]
  - Increased appetite [Unknown]
  - Food aversion [Unknown]
  - Disturbance in attention [Unknown]
  - Malaise [Unknown]
  - Abdominal distension [Unknown]
  - Fatigue [None]
  - Feeling cold [Unknown]
  - Visual field defect [Unknown]
  - Nausea [Unknown]

NARRATIVE: CASE EVENT DATE: 20190325
